FAERS Safety Report 16864876 (Version 2)
Quarter: 2019Q3

REPORT INFORMATION
  Report Type: Spontaneous
  Country: CA (occurrence: CA)
  Receive Date: 20190929
  Receipt Date: 20190929
  Transmission Date: 20191005
  Serious: Yes (Other)
  Sender: FDA-Public Use
  Company Number: PHHY2019CA225922

PATIENT
  Age: 10 Year
  Sex: Male

DRUGS (18)
  1. TACROLIMUS. [Interacting]
     Active Substance: TACROLIMUS
     Indication: PROPHYLAXIS AGAINST TRANSPLANT REJECTION
     Dosage: UNK
     Route: 048
  2. AZITHROMYCIN ANHYDROUS. [Interacting]
     Active Substance: AZITHROMYCIN ANHYDROUS
     Indication: PRODUCT USED FOR UNKNOWN INDICATION
     Dosage: UNK
     Route: 065
  3. CASPOFUNGIN ACETATE. [Interacting]
     Active Substance: CASPOFUNGIN ACETATE
     Indication: PRODUCT USED FOR UNKNOWN INDICATION
     Dosage: UNK
     Route: 042
  4. NIFEDIPINE. [Interacting]
     Active Substance: NIFEDIPINE
     Indication: PRODUCT USED FOR UNKNOWN INDICATION
     Dosage: UNK
     Route: 048
  5. PREDNISONE. [Interacting]
     Active Substance: PREDNISONE
     Indication: PROPHYLAXIS AGAINST TRANSPLANT REJECTION
     Dosage: UNK
     Route: 048
  6. APO MONTELUKAST [Interacting]
     Active Substance: MONTELUKAST SODIUM
     Indication: PRODUCT USED FOR UNKNOWN INDICATION
     Dosage: UNK
     Route: 048
  7. PANTOPRAZOLE [Interacting]
     Active Substance: PANTOPRAZOLE
     Indication: PRODUCT USED FOR UNKNOWN INDICATION
     Dosage: UNK
     Route: 048
  8. PANTOPRAZOLE [Interacting]
     Active Substance: PANTOPRAZOLE
     Indication: PRODUCT USED FOR UNKNOWN INDICATION
     Dosage: UNK
     Route: 042
  9. APO MYCOPHENOLATE [Interacting]
     Active Substance: MYCOPHENOLIC ACID
     Indication: PROPHYLAXIS AGAINST TRANSPLANT REJECTION
     Dosage: UNK
     Route: 048
  10. CIPROFLOXACIN. [Suspect]
     Active Substance: CIPROFLOXACIN
     Indication: PRODUCT USED FOR UNKNOWN INDICATION
     Dosage: UNK
     Route: 048
  11. VORICONAZOLE. [Interacting]
     Active Substance: VORICONAZOLE
     Indication: PRODUCT USED FOR UNKNOWN INDICATION
     Dosage: UNK
     Route: 048
  12. APO-SULFATRIM [Interacting]
     Active Substance: SULFAMETHOXAZOLE\TRIMETHOPRIM
     Indication: PRODUCT USED FOR UNKNOWN INDICATION
     Dosage: UNK
     Route: 048
  13. SULFAMETHOXAZOLE AND TRIMETHOPRIM [Interacting]
     Active Substance: SULFAMETHOXAZOLE\TRIMETHOPRIM
     Indication: PRODUCT USED FOR UNKNOWN INDICATION
     Dosage: UNK
     Route: 048
  14. APO AZITHROMYCIN [Interacting]
     Active Substance: AZITHROMYCIN
     Indication: PRODUCT USED FOR UNKNOWN INDICATION
     Dosage: UNK
     Route: 048
  15. MONTELUKAST SODIUM. [Interacting]
     Active Substance: MONTELUKAST SODIUM
     Indication: PRODUCT USED FOR UNKNOWN INDICATION
     Dosage: UNK
     Route: 048
  16. MYCOPHENOLATE MOFETIL. [Interacting]
     Active Substance: MYCOPHENOLATE MOFETIL
     Indication: PROPHYLAXIS AGAINST TRANSPLANT REJECTION
     Dosage: UNK
     Route: 048
  17. APO-VORICONAZOLE [Interacting]
     Active Substance: VORICONAZOLE
     Indication: FUNGAL INFECTION
     Dosage: UNK
     Route: 048
  18. CANCIDAS [Interacting]
     Active Substance: CASPOFUNGIN ACETATE
     Indication: ANTIFUNGAL PROPHYLAXIS
     Dosage: UNK
     Route: 042

REACTIONS (7)
  - Photodermatosis [Not Recovered/Not Resolved]
  - Squamous cell carcinoma of skin [Not Recovered/Not Resolved]
  - Solar lentigo [Not Recovered/Not Resolved]
  - Actinic keratosis [Not Recovered/Not Resolved]
  - Dysplastic naevus [Not Recovered/Not Resolved]
  - Photosensitivity reaction [Not Recovered/Not Resolved]
  - Drug interaction [Not Recovered/Not Resolved]
